FAERS Safety Report 18190694 (Version 2)
Quarter: 2020Q4

REPORT INFORMATION
  Report Type: Report from Study
  Country: US (occurrence: US)
  Receive Date: 20200824
  Receipt Date: 20201009
  Transmission Date: 20210113
  Serious: Yes (Death, Hospitalization, Other)
  Sender: FDA-Public Use
  Company Number: US-ASTRAZENECA-2020SF05686

PATIENT
  Age: 25197 Day
  Sex: Female
  Weight: 70.1 kg

DRUGS (3)
  1. LYNPARZA [Suspect]
     Active Substance: OLAPARIB
     Indication: OVARIAN CANCER
     Route: 048
  2. AVASTIN [Concomitant]
     Active Substance: BEVACIZUMAB
     Indication: ILL-DEFINED DISORDER
     Dosage: 15.0MG/KG UNKNOWN
     Dates: start: 20200402, end: 20200807
  3. LYNPARZA [Suspect]
     Active Substance: OLAPARIB
     Indication: OVARIAN CANCER
     Route: 048
     Dates: start: 20200611, end: 20200731

REACTIONS (8)
  - Pneumonia aspiration [Fatal]
  - Vomiting [Not Recovered/Not Resolved]
  - Dyspnoea [Not Recovered/Not Resolved]
  - Syncope [Not Recovered/Not Resolved]
  - Haemoglobin decreased [Not Recovered/Not Resolved]
  - Pneumonitis [Fatal]
  - Acute respiratory distress syndrome [Fatal]
  - Aspiration [Unknown]

NARRATIVE: CASE EVENT DATE: 20200623
